FAERS Safety Report 24605340 (Version 1)
Quarter: 2024Q4

REPORT INFORMATION
  Report Type: Spontaneous
  Country: US (occurrence: US)
  Receive Date: 20241111
  Receipt Date: 20241111
  Transmission Date: 20250115
  Serious: No
  Sender: SANOFI AVENTIS
  Company Number: US-SA-2024SA325690

PATIENT
  Age: 36 Year
  Sex: Female

DRUGS (1)
  1. DUPIXENT [Suspect]
     Active Substance: DUPILUMAB
     Dosage: 300 MG 1 DOSE EVERY 2 WEEK
     Route: 065
     Dates: start: 20231010

REACTIONS (2)
  - Exposure via skin contact [Unknown]
  - Accidental exposure to product [Unknown]
